FAERS Safety Report 8943411 (Version 1)
Quarter: 2012Q4

REPORT INFORMATION
  Report Type: 
  Country: US (occurrence: US)
  Receive Date: 20121204
  Receipt Date: 20121204
  Transmission Date: 20130627
  Serious: No
  Sender: FDA-Public Use
  Company Number: US-009507513-1211USA009891

PATIENT
  Age: 63 Year
  Sex: Female

DRUGS (2)
  1. SAPHRIS [Suspect]
     Indication: SCHIZOAFFECTIVE DISORDER
     Dosage: 5 mg, bid
     Route: 060
  2. DEPAKOTE [Concomitant]

REACTIONS (1)
  - Platelet count decreased [Unknown]
